FAERS Safety Report 24137195 (Version 1)
Quarter: 2024Q3

REPORT INFORMATION
  Report Type: Spontaneous
  Country: US (occurrence: None)
  Receive Date: 20240724
  Receipt Date: 20240724
  Transmission Date: 20241017
  Serious: No
  Sender: Public
  Company Number: None

PATIENT
  Age: 13 Year
  Sex: Female
  Weight: 54 kg

DRUGS (1)
  1. MONTELUKAST [Suspect]
     Active Substance: MONTELUKAST SODIUM
     Indication: Asthma
     Dosage: OTHER QUANTITY : 1 TABLET(S);?FREQUENCY : AT BEDTIME;?
     Route: 048

REACTIONS (12)
  - Mental disorder [None]
  - Fear [None]
  - Depression [None]
  - Anxiety [None]
  - Separation anxiety disorder [None]
  - Insomnia [None]
  - Restlessness [None]
  - Irritability [None]
  - Intentional self-injury [None]
  - Respiratory disorder [None]
  - Product communication issue [None]
  - Environmental exposure [None]

NARRATIVE: CASE EVENT DATE: 20240401
